FAERS Safety Report 9492258 (Version 1)
Quarter: 2013Q3

REPORT INFORMATION
  Report Type: Spontaneous
  Country: GB (occurrence: GB)
  Receive Date: 20130830
  Receipt Date: 20130830
  Transmission Date: 20140515
  Serious: Yes (Disabling)
  Sender: FDA-Public Use
  Company Number: ALCN2013GB004357

PATIENT
  Age: 81 Year
  Sex: Female

DRUGS (5)
  1. AZOPT [Suspect]
     Route: 047
  2. LANSOPRAZOLE [Concomitant]
  3. LATANOPROST [Concomitant]
  4. LEVOTHYROXINE [Concomitant]
  5. SALBUTAMOL [Concomitant]

REACTIONS (1)
  - Myalgia [Recovered/Resolved]
